FAERS Safety Report 9217498 (Version 1)
Quarter: 2013Q2

REPORT INFORMATION
  Report Type: Spontaneous
  Country: US (occurrence: US)
  Receive Date: 20130408
  Receipt Date: 20130408
  Transmission Date: 20140414
  Serious: Yes (Other)
  Sender: FDA-Public Use
  Company Number: US-PFIZER INC-2013109885

PATIENT
  Age: 30 Year
  Sex: Female
  Weight: 44.9 kg

DRUGS (1)
  1. NEURONTIN [Suspect]
     Indication: NEUROPATHY PERIPHERAL
     Dosage: UNK
     Dates: start: 1996, end: 1996

REACTIONS (7)
  - Road traffic accident [Unknown]
  - Epilepsy [Unknown]
  - Uterine disorder [Unknown]
  - Menopause [Unknown]
  - Feeling abnormal [Unknown]
  - Drug ineffective [Unknown]
  - Off label use [Unknown]
